FAERS Safety Report 8294350-9 (Version None)
Quarter: 2012Q2

REPORT INFORMATION
  Report Type: 
  Country: None (occurrence: None)
  Receive Date: 20120416
  Receipt Date: 20120405
  Transmission Date: 20120825
  Serious: Yes (Disabling, Other)
  Sender: FDA-Public Use
  Company Number: 2010MA002165

PATIENT
  Sex: Female
  Weight: 58.9676 kg

DRUGS (79)
  1. AMITRIPTYLINE HCL [Concomitant]
  2. AMOXICILLIN [Concomitant]
  3. ASPIRIN [Concomitant]
  4. BUPROPION HCL [Concomitant]
  5. CALCITRIOL [Concomitant]
  6. CALCIUM CARBONATE/VITAMIN D [Concomitant]
  7. CISAPRIDE [Concomitant]
  8. CITALOPRAM HYDROBROMIDE [Concomitant]
  9. CLINDAMYCIN [Concomitant]
  10. GUAIFENESIN [Concomitant]
  11. LISINOPRIL [Concomitant]
  12. METOPROLOL TARTRATE [Concomitant]
  13. SULAR [Concomitant]
  14. AZITHROMYCIN [Concomitant]
  15. CEPHALEXIN [Concomitant]
  16. GANCICLOVIR [Concomitant]
  17. HYDROMORPHONE HCL [Concomitant]
  18. PEDIATEX [Concomitant]
  19. PROGRAF [Concomitant]
  20. SENNA [Concomitant]
  21. AMLODIPINE [Concomitant]
  22. AVVELOX [Concomitant]
  23. GABAPENTIN [Concomitant]
  24. PSYLLIUM COLLOID [Concomitant]
  25. VALACYCLOVIR [Concomitant]
  26. VERAPAMIL [Concomitant]
  27. ALBUTEROL [Concomitant]
  28. ESCITALOPRAM [Concomitant]
  29. HEPARIN [Concomitant]
  30. LANTUS [Concomitant]
  31. MECLIZINE [Concomitant]
  32. PRAVASTATIN [Concomitant]
  33. RANITIDINE [Concomitant]
  34. SIROLIMUS [Concomitant]
  35. VITAMIN D [Concomitant]
  36. ESOMEPRAZOLE MAGNESIUM [Concomitant]
  37. FOSINOPRIL SODIUM [Concomitant]
  38. LIPITOR [Concomitant]
  39. NEORAL [Concomitant]
  40. POTASSIUM CHLORIDE [Concomitant]
  41. PRESNISONE [Concomitant]
  42. PROMETHAZINE [Concomitant]
  43. RABEPRAZOLE SODIUM [Concomitant]
  44. ASCORBIC ACID [Concomitant]
  45. CALCIUM [Concomitant]
  46. FEXOFENADINE [Concomitant]
  47. FOLIC ACID [Concomitant]
  48. LANSOPRAZOLE [Concomitant]
  49. LEVOFLOXACIN [Concomitant]
  50. NPH INSULIN [Concomitant]
  51. SODIUM BICARBONATE [Concomitant]
  52. TACROLIMUS [Concomitant]
  53. TANNATE [Concomitant]
  54. METOCLOPRAMIDE [Suspect]
     Indication: GASTROOESOPHAGEAL REFLUX DISEASE
     Dosage: 10 MG;TID;PO
     Route: 048
     Dates: start: 19981217, end: 20100201
  55. METOCLOPRAMIDE [Suspect]
     Indication: DIABETIC GASTROPARESIS
     Dosage: 10 MG;TID;PO
     Route: 048
     Dates: start: 19981217, end: 20100201
  56. CALCIUM CITRATE [Concomitant]
  57. CYCLOBENZAPRINE [Concomitant]
  58. DICLOXACILLIN [Concomitant]
  59. DOCUSATE [Concomitant]
  60. GEMFIBROZIL [Concomitant]
  61. NAPRELAN [Concomitant]
  62. NOVOLOG [Concomitant]
  63. NYSTATIN [Concomitant]
  64. PREVACID [Concomitant]
  65. TRIMOX DS [Concomitant]
  66. MYCOPHENOLATE MOFETIL (CELLCEPT) [Concomitant]
  67. CLONIDINE TTS PATCH [Concomitant]
  68. FERROUS FUMARATE [Concomitant]
  69. HUMULIN R [Concomitant]
  70. HYDROCODONE BITARTRATE AND ACETAMINOPHEN [Concomitant]
  71. MAGNESIUM [Concomitant]
  72. METRONIDAZOLE [Concomitant]
  73. MYCOPHENOLATE MOFETIL [Concomitant]
  74. NICOTINE [Concomitant]
  75. PREDNISOLONE [Concomitant]
  76. QUETIAPINE FUMAR [Concomitant]
  77. SIMVASTATIN [Concomitant]
  78. TOPROL-XL [Concomitant]
  79. WARFARIN SODIUM [Concomitant]

REACTIONS (9)
  - RENAL TRANSPLANT [None]
  - TARDIVE DYSKINESIA [None]
  - ECONOMIC PROBLEM [None]
  - EMOTIONAL DISORDER [None]
  - INJURY [None]
  - DYSKINESIA [None]
  - EXTRAPYRAMIDAL DISORDER [None]
  - PROTRUSION TONGUE [None]
  - RENAL FAILURE [None]
